FAERS Safety Report 6645503 (Version 3)
Quarter: 2013Q1

REPORT INFORMATION
  Report Type: Spontaneous
  Country: US (occurrence: US)
  Receive Date: 20080521
  Receipt Date: 20130321
  Transmission Date: 20140127
  Serious: Yes (Hospitalization, Other)
  Sender: FDA-Public Use
  Company Number: US-JNJFOC-20080503642

PATIENT
  Age: 50 Year
  Sex: Female
  Weight: 77.11 kg

DRUGS (5)
  1. MOTRIN [Suspect]
     Indication: PAIN
     Route: 048
  2. MOTRIN [Suspect]
     Indication: PAIN
     Route: 048
     Dates: start: 200803, end: 20080428
  3. MOTRIN [Suspect]
     Indication: NECK PAIN
     Route: 048
  4. MOTRIN [Suspect]
     Indication: NECK PAIN
     Route: 048
     Dates: start: 200803, end: 20080428
  5. VITAMINS [Concomitant]
     Route: 048

REACTIONS (12)
  - Gastrointestinal haemorrhage [Recovered/Resolved]
  - Gait disturbance [Recovering/Resolving]
  - Pain [Recovering/Resolving]
  - Hypoaesthesia [Recovering/Resolving]
  - Rhinorrhoea [Not Recovered/Not Resolved]
  - Nasal congestion [Recovering/Resolving]
  - Headache [Recovering/Resolving]
  - Insomnia [Recovering/Resolving]
  - Lung disorder [Recovering/Resolving]
  - Activities of daily living impaired [Recovering/Resolving]
  - Malaise [Recovering/Resolving]
  - Ear disorder [Unknown]
